FAERS Safety Report 9229601 (Version 2)
Quarter: 2013Q2

REPORT INFORMATION
  Report Type: Spontaneous
  Country: US (occurrence: US)
  Receive Date: 20130414
  Receipt Date: 20130502
  Transmission Date: 20140414
  Serious: No
  Sender: FDA-Public Use
  Company Number: US-TEVA-395198USA

PATIENT
  Sex: Female

DRUGS (5)
  1. COPAXONE [Suspect]
     Indication: MULTIPLE SCLEROSIS
  2. CLONAZEPAM [Concomitant]
     Indication: OBSESSIVE-COMPULSIVE DISORDER
     Dosage: 2 MILLIGRAM DAILY;
     Route: 048
     Dates: start: 201302
  3. COUMADIN [Concomitant]
     Indication: COAGULOPATHY
     Dosage: 5 MILLIGRAM DAILY;
     Route: 048
     Dates: start: 2011
  4. COUMADIN [Concomitant]
     Indication: BLOOD DISORDER
  5. ATIVAN [Concomitant]
     Indication: ANXIETY
     Route: 048

REACTIONS (1)
  - Limb injury [Unknown]
